FAERS Safety Report 21909787 (Version 1)
Quarter: 2023Q1

REPORT INFORMATION
  Report Type: Spontaneous
  Country: CA (occurrence: CA)
  Receive Date: 20230125
  Receipt Date: 20230125
  Transmission Date: 20230418
  Serious: Yes (Other)
  Sender: FDA-Public Use
  Company Number: CA-BAYER-2023A008456

PATIENT
  Age: 2 Year
  Sex: Female

DRUGS (1)
  1. LORATADINE [Suspect]
     Active Substance: LORATADINE
     Dosage: 5 ML, BID
     Dates: start: 20230117

REACTIONS (2)
  - Loss of consciousness [None]
  - Extra dose administered [None]

NARRATIVE: CASE EVENT DATE: 20230117
